FAERS Safety Report 8255559-3 (Version None)
Quarter: 2012Q1

REPORT INFORMATION
  Report Type: 
  Country: None (occurrence: None)
  Receive Date: 20120330
  Receipt Date: 20120320
  Transmission Date: 20120608
  Serious: Yes (Hospitalization)
  Sender: FDA-Public Use
  Company Number: AUR-APL-2012-01574

PATIENT
  Age: 88 Year
  Sex: Female

DRUGS (2)
  1. AMIODARONE HCL [Suspect]
     Indication: ATRIAL FIBRILLATION
  2. NAPROXEN [Suspect]
     Indication: MUSCULOSKELETAL PAIN

REACTIONS (7)
  - THYROID DISORDER [None]
  - ATRIAL FIBRILLATION [None]
  - BLOOD THYROID STIMULATING HORMONE INCREASED [None]
  - ASTHENIA [None]
  - HAEMORRHAGIC ANAEMIA [None]
  - GASTRODUODENAL ULCER [None]
  - GASTROINTESTINAL HAEMORRHAGE [None]
